FAERS Safety Report 9224699 (Version 1)
Quarter: 2013Q1

REPORT INFORMATION
  Report Type: Spontaneous
  Country: US (occurrence: None)
  Receive Date: 20120917
  Receipt Date: 20120917
  Transmission Date: 20140127
  Serious: Yes (Other)
  Sender: FDA-Public Use
  Company Number: FK201102757

PATIENT
  Age: 64 Year
  Sex: Male
  Weight: 69.36 kg

DRUGS (2)
  1. CISPLATIN [Suspect]
     Indication: CHEMOTHERAPY
     Dosage: INTRAVENOUS (NOT OTHERWISE SPECIFIED)?
     Route: 042
     Dates: start: 20111031
  2. ETOPOSIDE [Suspect]
     Indication: CHEMOTHERAPY
     Dosage: INTRAVENOUS (NOT OTHERWISE SPECIFIED)?
     Route: 042
     Dates: start: 20111031, end: 20111104

REACTIONS (1)
  - Neutropenia [None]
